FAERS Safety Report 24417358 (Version 1)
Quarter: 2024Q4

REPORT INFORMATION
  Report Type: Spontaneous
  Country: US (occurrence: US)
  Receive Date: 20241009
  Receipt Date: 20241009
  Transmission Date: 20250114
  Serious: Yes (Hospitalization, Other)
  Sender: FRESENIUS KABI
  Company Number: US-FreseniusKabi-FK202414968

PATIENT
  Age: 52 Year
  Sex: Male

DRUGS (3)
  1. AMIODARONE [Suspect]
     Active Substance: AMIODARONE
     Indication: Ventricular tachycardia
     Route: 042
  2. MILRINONE [Concomitant]
     Active Substance: MILRINONE
     Indication: Cardiomyopathy
  3. HEPARIN [Concomitant]
     Active Substance: HEPARIN SODIUM
     Indication: Cardiomyopathy
     Dosage: DRIP

REACTIONS (1)
  - Torsade de pointes [Recovered/Resolved]
